FAERS Safety Report 19899253 (Version 1)
Quarter: 2021Q3

REPORT INFORMATION
  Report Type: Spontaneous
  Country: US (occurrence: US)
  Receive Date: 20210929
  Receipt Date: 20210929
  Transmission Date: 20211014
  Serious: Yes (Life-Threatening)
  Sender: FDA-Public Use
  Company Number: None

PATIENT
  Age: 52 Year
  Sex: Female
  Weight: 95.4 kg

DRUGS (4)
  1. DILAUDID [Suspect]
     Active Substance: HYDROMORPHONE HYDROCHLORIDE
     Indication: PAIN
     Dates: start: 20210928, end: 20210928
  2. D [Concomitant]
  3. MULTI [Concomitant]
  4. SLOW?FE [Concomitant]
     Active Substance: FERROUS SULFATE

REACTIONS (5)
  - Headache [None]
  - Oxygen saturation decreased [None]
  - Nausea [None]
  - Heart rate decreased [None]
  - Vomiting [None]

NARRATIVE: CASE EVENT DATE: 20210928
